FAERS Safety Report 8906339 (Version 1)
Quarter: 2012Q4

REPORT INFORMATION
  Report Type: Spontaneous
  Country: US (occurrence: None)
  Receive Date: 20121108
  Receipt Date: 20121108
  Transmission Date: 20130627
  Serious: Yes (Hospitalization, Other)
  Sender: FDA-Public Use
  Company Number: AXC-2012-000524

PATIENT
  Sex: Male

DRUGS (2)
  1. MESALAMINE [Suspect]
     Indication: ULCERATIVE COLITIS
  2. AZITHROMYCIN [Suspect]
     Indication: ULCERATIVE COLITIS

REACTIONS (6)
  - Hepatitis alcoholic [None]
  - Clostridium difficile colitis [None]
  - Multi-organ failure [None]
  - Dyspnoea [None]
  - Hepatic failure [None]
  - Dialysis [None]
